FAERS Safety Report 10450842 (Version 2)
Quarter: 2014Q4

REPORT INFORMATION
  Report Type: Report from Study
  Country: GB (occurrence: GB)
  Receive Date: 20140912
  Receipt Date: 20141022
  Transmission Date: 20150528
  Serious: Yes (Death, Hospitalization, Other)
  Sender: FDA-Public Use
  Company Number: GB-JNJFOC-20140900225

PATIENT
  Age: 65 Year
  Sex: Female
  Weight: 91 kg

DRUGS (5)
  1. GLYCEROL [Concomitant]
     Active Substance: GLYCERIN
     Indication: CONSTIPATION
     Route: 054
  2. IBRUTINIB [Suspect]
     Active Substance: IBRUTINIB
     Indication: CHRONIC LYMPHOCYTIC LEUKAEMIA
     Route: 048
     Dates: start: 20140715, end: 20140822
  3. LOSARTAN [Concomitant]
     Active Substance: LOSARTAN
     Route: 048
  4. LAXIDO [Concomitant]
     Active Substance: POLYETHYLENE GLYCOL 3350\POTASSIUM CHLORIDE\SODIUM BICARBONATE\SODIUM CHLORIDE
     Indication: CONSTIPATION
     Route: 048
  5. BETAHISTINE [Concomitant]
     Active Substance: BETAHISTINE
     Indication: MENIERE^S DISEASE
     Route: 048

REACTIONS (3)
  - Pyrexia [Recovered/Resolved]
  - Autoimmune haemolytic anaemia [Recovering/Resolving]
  - Chronic lymphocytic leukaemia [Fatal]

NARRATIVE: CASE EVENT DATE: 20140822
